FAERS Safety Report 5060662-5 (Version None)
Quarter: 2006Q3

REPORT INFORMATION
  Report Type: 
  Country: None (occurrence: None)
  Receive Date: 20060719
  Receipt Date: 20060719
  Transmission Date: 20061208
  Serious: Yes (Other)
  Sender: FDA-Public Use
  Company Number: None

PATIENT
  Sex: Male
  Weight: 88.4514 kg

DRUGS (2)
  1. LIPITOR [Suspect]
     Indication: BLOOD CHOLESTEROL INCREASED
     Dosage: 40MG 1 PER DAY PO
     Route: 048
     Dates: start: 20040201, end: 20060611
  2. ZETIA [Suspect]
     Dosage: 10MG 1 PER DAY PO
     Route: 048
     Dates: start: 20040201, end: 20060611

REACTIONS (3)
  - BURNING SENSATION [None]
  - MUSCULAR WEAKNESS [None]
  - MYALGIA [None]
